FAERS Safety Report 9467665 (Version 1)
Quarter: 2013Q3

REPORT INFORMATION
  Report Type: Spontaneous
  Country: US (occurrence: US)
  Receive Date: 20130821
  Receipt Date: 20130821
  Transmission Date: 20140515
  Serious: No
  Sender: FDA-Public Use
  Company Number: US-B.I. PHARMACEUTICALS,INC./RIDGEFIELD-2013-BI-24850BP

PATIENT
  Sex: 0

DRUGS (2)
  1. COMBIVENT [Suspect]
     Indication: PRODUCT USED FOR UNKNOWN INDICATION
  2. COMBIVENT MDI [Concomitant]

REACTIONS (2)
  - Drug ineffective [Unknown]
  - Drug effect decreased [Unknown]
